FAERS Safety Report 4754548-0 (Version None)
Quarter: 2005Q3

REPORT INFORMATION
  Report Type: 
  Country: None (occurrence: None)
  Receive Date: 20050825
  Receipt Date: 20050825
  Transmission Date: 20060218
  Serious: Yes (Disabling, Other)
  Sender: FDA-Public Use
  Company Number: None

PATIENT
  Age: 48 Year
  Sex: Female
  Weight: 46.2669 kg

DRUGS (1)
  1. KLONOPIN [Suspect]
     Indication: POST-TRAUMATIC STRESS DISORDER
     Dosage: 2 MG    FOUR TIMES DAILY   PO
     Route: 048
     Dates: start: 19981207, end: 20041204

REACTIONS (15)
  - ABDOMINAL PAIN [None]
  - ACTIVITIES OF DAILY LIVING IMPAIRED [None]
  - AKATHISIA [None]
  - AMNESIA [None]
  - APHAGIA [None]
  - DEPENDENCE [None]
  - DRUG WITHDRAWAL SYNDROME [None]
  - DYSGEUSIA [None]
  - HYPOAESTHESIA [None]
  - MUSCLE SPASMS [None]
  - PAIN [None]
  - PARADOXICAL DRUG REACTION [None]
  - PSYCHOMOTOR HYPERACTIVITY [None]
  - TINNITUS [None]
  - WEIGHT DECREASED [None]
